FAERS Safety Report 18086365 (Version 1)
Quarter: 2020Q3

REPORT INFORMATION
  Report Type: Spontaneous
  Country: US (occurrence: US)
  Receive Date: 20200728
  Receipt Date: 20200728
  Transmission Date: 20201103
  Serious: Yes (Hospitalization)
  Sender: FDA-Public Use
  Company Number: None

PATIENT
  Age: 23 Year
  Sex: Male
  Weight: 83 kg

DRUGS (3)
  1. RISPERIDONE ODT 3MG [Suspect]
     Active Substance: RISPERIDONE
     Indication: PSYCHOTIC DISORDER
     Route: 048
     Dates: start: 20200719, end: 20200726
  2. RISPERIDONE 1MG [Suspect]
     Active Substance: RISPERIDONE
     Indication: PSYCHOTIC DISORDER
     Route: 048
     Dates: start: 20200707, end: 20200716
  3. RISPERIDONE ODT 2MG [Suspect]
     Active Substance: RISPERIDONE
     Indication: PSYCHOTIC DISORDER
     Route: 048
     Dates: start: 20200716, end: 20200719

REACTIONS (2)
  - Genital pain [None]
  - Priapism [None]

NARRATIVE: CASE EVENT DATE: 20200726
